FAERS Safety Report 15780628 (Version 1)
Quarter: 2019Q1

REPORT INFORMATION
  Report Type: Spontaneous
  Country: IT (occurrence: IT)
  Receive Date: 20190102
  Receipt Date: 20190102
  Transmission Date: 20190417
  Serious: Yes (Life-Threatening, Other)
  Sender: FDA-Public Use
  Company Number: IT-AUROBINDO-AUR-APL-2019-000046

PATIENT
  Age: 42 Year
  Sex: Male

DRUGS (8)
  1. OXALIPLATIN. [Suspect]
     Active Substance: OXALIPLATIN
     Indication: RECTAL ADENOCARCINOMA
     Dosage: 50% REDUCTION IN THE DOSE OF CHEMOTHERAPY
     Route: 042
  2. OXALIPLATIN. [Suspect]
     Active Substance: OXALIPLATIN
     Dosage: DAY 1
     Route: 042
     Dates: start: 201309
  3. BERINERTP C1 [Concomitant]
     Indication: PREMEDICATION
     Dosage: 1000 U BERINERT INHIBITOR C1 IN 100 ML SALINE SOLUTION I.V. EVERY WEEK THROUGHOUT TREATMENT
     Route: 042
  4. FLUOROURACIL. [Suspect]
     Active Substance: FLUOROURACIL
     Dosage: 50% REDUCTION IN THE DOSE OF CHEMOTHERAPY
     Route: 042
  5. FLUOROURACIL. [Suspect]
     Active Substance: FLUOROURACIL
     Indication: RECTAL ADENOCARCINOMA
     Dosage: DAY 2
     Route: 042
     Dates: start: 201309
  6. SALINE                             /00075401/ [Concomitant]
     Active Substance: SODIUM CHLORIDE
     Indication: PRODUCT USED FOR UNKNOWN INDICATION
     Dosage: 1000 U BERINERT INHIBITOR C1 IN 100 ML SALINE SOLUTION I.V. EVERY WEEK THROUGHOUT TREATMENT
     Route: 042
  7. FOLINIC ACID [Suspect]
     Active Substance: LEUCOVORIN
     Indication: RECTAL ADENOCARCINOMA
     Dosage: 50% REDUCTION IN THE DOSE OF CHEMOTHERAPY
     Route: 042
  8. FOLINIC ACID [Suspect]
     Active Substance: LEUCOVORIN
     Dosage: DAY 2
     Route: 042
     Dates: start: 201309

REACTIONS (5)
  - Neuropathy peripheral [Unknown]
  - Thrombocytopenia [Unknown]
  - Hereditary angioedema [Recovered/Resolved]
  - Haematotoxicity [Unknown]
  - Neutropenia [Unknown]

NARRATIVE: CASE EVENT DATE: 2013
